FAERS Safety Report 17806736 (Version 1)
Quarter: 2020Q2

REPORT INFORMATION
  Report Type: Spontaneous
  Country: US (occurrence: US)
  Receive Date: 20200519
  Receipt Date: 20200519
  Transmission Date: 20200714
  Serious: Yes (Death)
  Sender: FDA-Public Use
  Company Number: None

PATIENT
  Age: 54 Year
  Sex: Male

DRUGS (22)
  1. CEFEPIME [Concomitant]
     Active Substance: CEFEPIME HYDROCHLORIDE
     Dates: start: 20200511, end: 20200513
  2. ROBITUSSIN DM [Concomitant]
     Active Substance: DEXTROMETHORPHAN HYDROBROMIDE\GUAIFENESIN
     Dates: start: 20200511, end: 20200513
  3. PANTOPRAZOLE [Concomitant]
     Active Substance: PANTOPRAZOLE
     Dates: start: 20200503, end: 20200516
  4. VANCOMYCIN [Concomitant]
     Active Substance: VANCOMYCIN
     Dates: start: 20200511, end: 20200513
  5. VASOPRESSIN. [Concomitant]
     Active Substance: VASOPRESSIN
     Dates: start: 20200511, end: 20200516
  6. INSULIN LISPRO [Concomitant]
     Active Substance: INSULIN LISPRO
     Dates: start: 20200512, end: 20200516
  7. MIDAZOLAM. [Concomitant]
     Active Substance: MIDAZOLAM
     Dates: start: 20200511, end: 20200516
  8. REMDESIVIR EUA [Suspect]
     Active Substance: REMDESIVIR
     Indication: COVID-19
     Dates: start: 20200509, end: 20200513
  9. MELATONIN [Concomitant]
     Active Substance: MELATONIN
     Dates: start: 20200509, end: 20200516
  10. ASCORBIC ACID. [Concomitant]
     Active Substance: ASCORBIC ACID
     Dates: start: 20200503, end: 20200516
  11. DIPHENHYDRAMINE. [Concomitant]
     Active Substance: DIPHENHYDRAMINE
     Dates: start: 20200511, end: 20200516
  12. DOCUSATE [Concomitant]
     Active Substance: DOCUSATE
     Dates: start: 20200508, end: 20200516
  13. AMIKACIN. [Concomitant]
     Active Substance: AMIKACIN
     Dates: start: 20200511, end: 20200513
  14. ASPIRIN. [Concomitant]
     Active Substance: ASPIRIN
     Dates: start: 20200509, end: 20200513
  15. DOXYCYCLINE. [Concomitant]
     Active Substance: DOXYCYCLINE
     Dates: start: 20200504, end: 20200511
  16. FENTANYL. [Concomitant]
     Active Substance: FENTANYL
     Dates: start: 20200511, end: 20200516
  17. METHYLPREDNISOLONE. [Concomitant]
     Active Substance: METHYLPREDNISOLONE
     Dates: start: 20200510, end: 20200511
  18. NOREPINEPHRINE. [Concomitant]
     Active Substance: NOREPINEPHRINE
     Dates: start: 20200511, end: 20200516
  19. ENOXAPARIN [Concomitant]
     Active Substance: ENOXAPARIN
     Dates: start: 20200503, end: 20200514
  20. TOCILIZUMAB. [Concomitant]
     Active Substance: TOCILIZUMAB
     Dates: start: 20200510, end: 20200510
  21. MONTELUKAST [Concomitant]
     Active Substance: MONTELUKAST SODIUM
     Dates: start: 20200509, end: 20200513
  22. CHOLECALCIFEROL [Concomitant]
     Active Substance: CHOLECALCIFEROL
     Dates: start: 20200503, end: 20200516

REACTIONS (5)
  - Clinical trial participant [None]
  - Tachycardia [None]
  - Arrhythmia [None]
  - Product use in unapproved indication [None]
  - Pulseless electrical activity [None]

NARRATIVE: CASE EVENT DATE: 20200516
